FAERS Safety Report 24285321 (Version 1)
Quarter: 2024Q3

REPORT INFORMATION
  Report Type: Spontaneous
  Country: CN (occurrence: CN)
  Receive Date: 20240905
  Receipt Date: 20240905
  Transmission Date: 20241016
  Serious: Yes (Hospitalization)
  Sender: ACCORD
  Company Number: CN-Accord-444652

PATIENT
  Age: 55 Year
  Sex: Male

DRUGS (3)
  1. MYCOPHENOLATE MOFETIL [Suspect]
     Active Substance: MYCOPHENOLATE MOFETIL
     Indication: Immunosuppressant drug therapy
  2. TACROLIMUS [Suspect]
     Active Substance: TACROLIMUS
     Indication: Immunosuppressant drug therapy
  3. PREDNISOLONE [Suspect]
     Active Substance: PREDNISOLONE
     Indication: Immunosuppressant drug therapy

REACTIONS (6)
  - Pseudomonas infection [Recovering/Resolving]
  - Fungal skin infection [Recovering/Resolving]
  - Pleural effusion [Recovering/Resolving]
  - Trichophytosis [Recovering/Resolving]
  - Disseminated mycobacterium avium complex infection [Recovering/Resolving]
  - Staphylococcal infection [Recovering/Resolving]
